FAERS Safety Report 6269784-4 (Version None)
Quarter: 2009Q3

REPORT INFORMATION
  Report Type: 
  Country: None (occurrence: None)
  Receive Date: 20090716
  Receipt Date: 20090714
  Transmission Date: 20100115
  Serious: Yes (Hospitalization, Other)
  Sender: FDA-Public Use
  Company Number: DE-JNJFOC-20090304512

PATIENT
  Age: 62 Year
  Sex: Female

DRUGS (6)
  1. TAVANIC [Suspect]
     Indication: BRONCHITIS
     Dosage: FILM COATED TABLETS
     Route: 048
  2. XIPAMID [Suspect]
     Indication: OEDEMA
     Route: 048
  3. ALLOPURINOL [Concomitant]
     Indication: HYPERURICAEMIA
     Route: 048
  4. BISOPROLOL FUMARATE [Concomitant]
     Indication: HYPERTENSION
     Route: 048
  5. REWODINA [Concomitant]
     Indication: OSTEOPOROSIS
     Dosage: 1-2
     Route: 048
  6. SIMVASTATIN [Concomitant]
     Indication: HYPERCHOLESTEROLAEMIA
     Route: 048

REACTIONS (11)
  - CIRCULATORY COLLAPSE [None]
  - DIARRHOEA [None]
  - FALL [None]
  - HYPOKALAEMIA [None]
  - MUSCULOSKELETAL STIFFNESS [None]
  - MYALGIA [None]
  - NAUSEA [None]
  - PAIN IN EXTREMITY [None]
  - SPINAL FRACTURE [None]
  - URINARY INCONTINENCE [None]
  - VOMITING [None]
